FAERS Safety Report 8128385-3 (Version None)
Quarter: 2012Q1

REPORT INFORMATION
  Report Type: 
  Country: None (occurrence: None)
  Receive Date: 20120210
  Receipt Date: 20120203
  Transmission Date: 20120608
  Serious: Yes (Life-Threatening, Other)
  Sender: FDA-Public Use
  Company Number: DE-BRISTOL-MYERS SQUIBB COMPANY-16336356

PATIENT
  Age: 60 Year
  Sex: Female
  Weight: 63 kg

DRUGS (2)
  1. YERVOY [Suspect]
     Indication: MALIGNANT MELANOMA
     Dosage: 3 CYCLES, RECEIVED ON 06-SEP-2011 28SEP11,18OCT11.
     Route: 042
     Dates: start: 20110906
  2. PREDNISONE TAB [Concomitant]
     Indication: HYPOPHYSITIS
     Route: 048
     Dates: start: 20111107

REACTIONS (3)
  - HYPOPHYSITIS [None]
  - INTESTINAL PERFORATION [None]
  - COLITIS ISCHAEMIC [None]
